FAERS Safety Report 5825731-8 (Version None)
Quarter: 2008Q3

REPORT INFORMATION
  Report Type: 
  Country: None (occurrence: None)
  Receive Date: 20080723
  Receipt Date: 20080710
  Transmission Date: 20090109
  Serious: Yes (Death, Hospitalization)
  Sender: FDA-Public Use
  Company Number: 2008S1012188

PATIENT
  Age: 65 Year
  Sex: Male

DRUGS (10)
  1. PRAVASTATIN [Suspect]
     Indication: HYPERCHOLESTEROLAEMIA
  2. ZOCOR [Suspect]
     Dosage: 20 MG; DAILY ORAL, 20 MG; ORAL; DAILY, 10 MG; ORAL; DAILY
     Route: 048
     Dates: start: 20000501, end: 20000930
  3. ZOCOR [Suspect]
     Dosage: 20 MG; DAILY ORAL, 20 MG; ORAL; DAILY, 10 MG; ORAL; DAILY
     Route: 048
     Dates: start: 20000501, end: 20001030
  4. ZOCOR [Suspect]
     Dosage: 20 MG; DAILY ORAL, 20 MG; ORAL; DAILY, 10 MG; ORAL; DAILY
     Route: 048
     Dates: start: 20000930, end: 20001030
  5. ASPIRIN [Concomitant]
  6. ATENOLOL [Concomitant]
  7. CIMETIDINE [Concomitant]
  8. CIPROFLOXACIN [Concomitant]
  9. ENALAPRIL MALEATE [Concomitant]
  10. RAMIPRIL [Concomitant]

REACTIONS (5)
  - COLITIS ULCERATIVE [None]
  - MEGACOLON [None]
  - MULTI-ORGAN FAILURE [None]
  - PERITONITIS [None]
  - SEPTIC SHOCK [None]
